FAERS Safety Report 9255032 (Version 1)
Quarter: 2013Q2

REPORT INFORMATION
  Report Type: Spontaneous
  Country: BR (occurrence: None)
  Receive Date: 20130422
  Receipt Date: 20130422
  Transmission Date: 20140414
  Serious: Yes (Hospitalization)
  Sender: FDA-Public Use
  Company Number: BR-1197715

PATIENT
  Age: 9 Year
  Sex: Male

DRUGS (2)
  1. PATANOL [Suspect]
     Indication: CONJUNCTIVITIS
     Route: 047
     Dates: start: 20130406
  2. LACRIFILM [Concomitant]

REACTIONS (3)
  - Headache [None]
  - Back pain [None]
  - Vomiting [None]
